FAERS Safety Report 9546826 (Version 1)
Quarter: 2013Q3

REPORT INFORMATION
  Report Type: Spontaneous
  Country: GB (occurrence: GB)
  Receive Date: 20130924
  Receipt Date: 20130924
  Transmission Date: 20140515
  Serious: Yes (Hospitalization)
  Sender: FDA-Public Use
  Company Number: GB-BRISTOL-MYERS SQUIBB COMPANY-19365931

PATIENT
  Age: 71 Year
  Sex: Female
  Weight: 82.7 kg

DRUGS (4)
  1. ELIQUIS [Suspect]
     Indication: THROMBOSIS PROPHYLAXIS
     Route: 048
     Dates: start: 20130822, end: 20130826
  2. SIMVASTATIN [Concomitant]
  3. PARACETAMOL [Concomitant]
  4. TRAMADOL [Concomitant]

REACTIONS (1)
  - Gastritis [Recovering/Resolving]
